FAERS Safety Report 6043367-3 (Version None)
Quarter: 2009Q1

REPORT INFORMATION
  Report Type: 
  Country: None (occurrence: None)
  Receive Date: 20090120
  Receipt Date: 20090113
  Transmission Date: 20090719
  Serious: Yes (Hospitalization)
  Sender: FDA-Public Use
  Company Number: US-ASTRAZENECA-2009UW01014

PATIENT
  Age: 17229 Day
  Sex: Female
  Weight: 122.5 kg

DRUGS (8)
  1. SEROQUEL [Suspect]
     Route: 048
     Dates: start: 20030113
  2. SEROQUEL [Suspect]
     Route: 048
  3. CLONIPINE [Concomitant]
  4. OXYCONTIN [Concomitant]
  5. NEXIUM [Concomitant]
  6. LISINOPRIL [Concomitant]
  7. MUSCLE RELAXER [Concomitant]
  8. DIABETIC PILL [Concomitant]

REACTIONS (11)
  - ASTHENIA [None]
  - BACK INJURY [None]
  - BLOOD PRESSURE DECREASED [None]
  - DRUG INEFFECTIVE [None]
  - INSOMNIA [None]
  - MEDICATION ERROR [None]
  - MUSCLE SPASMS [None]
  - RESPIRATORY RATE DECREASED [None]
  - SOMNOLENCE [None]
  - THROMBOSIS [None]
  - WEIGHT INCREASED [None]
